FAERS Safety Report 8418999-5 (Version None)
Quarter: 2012Q2

REPORT INFORMATION
  Report Type: 
  Country: None (occurrence: None)
  Receive Date: 20120607
  Receipt Date: 20120601
  Transmission Date: 20120825
  Serious: Yes (Death)
  Sender: FDA-Public Use
  Company Number: PHHY2012PH048359

PATIENT

DRUGS (2)
  1. GLEEVEC [Suspect]
     Dosage: PATERNAL DOSE: 400MG, DAY
  2. GLEEVEC [Suspect]
     Dosage: PATERNAL DOSE: 600MG, DAY

REACTIONS (2)
  - DEATH NEONATAL [None]
  - EXPOSURE VIA FATHER [None]
